FAERS Safety Report 26186380 (Version 1)
Quarter: 2025Q4

REPORT INFORMATION
  Report Type: Report from Study
  Country: EU (occurrence: EU)
  Receive Date: 20251222
  Receipt Date: 20251222
  Transmission Date: 20260118
  Serious: Yes (Hospitalization, Other)
  Sender: MERZ
  Company Number: EU-ACORDA THERAPEUTICS IRELAND LIMITED-ACO_179963_2025

PATIENT

DRUGS (7)
  1. INBRIJA [Suspect]
     Active Substance: LEVODOPA
     Indication: Parkinson^s disease
     Dosage: 33 MILLIGRAM, PRN
     Dates: start: 202510
  2. INBRIJA [Suspect]
     Active Substance: LEVODOPA
     Dosage: 33 MILLIGRAM, PRN
     Dates: start: 202510
  3. PRAMIPEXOLE DIHYDROCHLORIDE [Concomitant]
     Active Substance: PRAMIPEXOLE DIHYDROCHLORIDE
     Indication: Product used for unknown indication
     Dosage: UNK
     Route: 065
  4. CARBIDOPA\LEVODOPA [Concomitant]
     Active Substance: CARBIDOPA\LEVODOPA
     Indication: Product used for unknown indication
     Dosage: 25 MILLIGRAM
     Route: 065
  5. CARBIDOPA\LEVODOPA [Concomitant]
     Active Substance: CARBIDOPA\LEVODOPA
     Dosage: SINEMET RETARD AT NIGHT
  6. ONGENTYS [Concomitant]
     Active Substance: OPICAPONE
     Indication: Product used for unknown indication
     Dosage: UNK
     Route: 065
  7. ASPIRIN [Concomitant]
     Active Substance: ASPIRIN
     Indication: Product used for unknown indication
     Dosage: UNK
     Route: 065

REACTIONS (21)
  - Cataract [Unknown]
  - Hallucination, visual [Not Recovered/Not Resolved]
  - Anxiety [Recovered/Resolved]
  - Joint instability [Unknown]
  - Dry throat [Not Recovered/Not Resolved]
  - Memory impairment [Unknown]
  - Nightmare [Not Recovered/Not Resolved]
  - Bronchitis [Not Recovered/Not Resolved]
  - Diplopia [Unknown]
  - Fall [Recovered/Resolved]
  - Fall [Recovered/Resolved]
  - Cough [Not Recovered/Not Resolved]
  - Fatigue [Not Recovered/Not Resolved]
  - Dyspnoea [Unknown]
  - Dizziness [Not Recovered/Not Resolved]
  - Wrong technique in product usage process [Not Recovered/Not Resolved]
  - Treatment noncompliance [Not Recovered/Not Resolved]
  - Drug effect less than expected [Not Recovered/Not Resolved]
  - Device issue [Unknown]
  - Product communication issue [Unknown]
  - Product residue present [Not Recovered/Not Resolved]

NARRATIVE: CASE EVENT DATE: 20251001
